FAERS Safety Report 23142563 (Version 1)
Quarter: 2023Q4

REPORT INFORMATION
  Report Type: Spontaneous
  Country: IN (occurrence: IN)
  Receive Date: 20231103
  Receipt Date: 20231103
  Transmission Date: 20240109
  Serious: Yes (Other)
  Sender: FDA-Public Use
  Company Number: IN-CPL-003696

PATIENT
  Age: 55 Year
  Sex: Female

DRUGS (2)
  1. PREGABALIN [Suspect]
     Active Substance: PREGABALIN
     Indication: Pain
  2. ACECLOFENAC\PREGABALIN [Suspect]
     Active Substance: ACECLOFENAC\PREGABALIN
     Indication: Pain
     Dosage: 200 MG + 75 MG AT NIGHT

REACTIONS (1)
  - Drug dependence [Unknown]
